FAERS Safety Report 6135917-3 (Version None)
Quarter: 2009Q1

REPORT INFORMATION
  Report Type: 
  Country: None (occurrence: None)
  Receive Date: 20090327
  Receipt Date: 20090316
  Transmission Date: 20090719
  Serious: Yes (Death, Other)
  Sender: FDA-Public Use
  Company Number: ES-JNJFOC-20090304876

PATIENT
  Sex: Female

DRUGS (1)
  1. REMICADE [Suspect]
     Indication: RHEUMATOID ARTHRITIS
     Route: 042

REACTIONS (5)
  - AMYLOIDOSIS [None]
  - CARDIAC ARREST [None]
  - GASTROENTERITIS [None]
  - PROCEDURAL COMPLICATION [None]
  - RENAL FAILURE [None]
